FAERS Safety Report 8029252-6 (Version None)
Quarter: 2012Q1

REPORT INFORMATION
  Report Type: 
  Country: None (occurrence: None)
  Receive Date: 20120106
  Receipt Date: 20120105
  Transmission Date: 20120608
  Serious: Yes (Other)
  Sender: FDA-Public Use
  Company Number: US-AMGEN INC.-QUU444501

PATIENT
  Age: 55 Year
  Sex: Male
  Weight: 201 kg

DRUGS (12)
  1. METAMUCIL                          /00029101/ [Concomitant]
     Indication: PRODUCT USED FOR UNKNOWN INDICATION
  2. PRILOSEC [Concomitant]
     Dosage: 20 MG, UNK
     Route: 048
  3. FLOMAX [Concomitant]
     Indication: PRODUCT USED FOR UNKNOWN INDICATION
  4. FOLIC ACID [Concomitant]
     Indication: PRODUCT USED FOR UNKNOWN INDICATION
  5. MIRTAZAPINE [Concomitant]
     Indication: PRODUCT USED FOR UNKNOWN INDICATION
     Dosage: UNK
     Dates: start: 20091019
  6. VITAMIN C                          /00008001/ [Concomitant]
     Dosage: UNK UNK, QD
     Route: 048
  7. PLATELETS [Concomitant]
  8. NPLATE [Suspect]
     Indication: IDIOPATHIC THROMBOCYTOPENIC PURPURA
     Dosage: UNK UNK, UNK
     Dates: start: 20091019, end: 20091207
  9. VITAMIN B 12 LICHTENSTEIN [Concomitant]
     Indication: PRODUCT USED FOR UNKNOWN INDICATION
  10. PEPCID [Concomitant]
     Indication: PRODUCT USED FOR UNKNOWN INDICATION
  11. RITUXIMAB [Concomitant]
     Indication: IDIOPATHIC THROMBOCYTOPENIC PURPURA
     Dosage: UNK
     Dates: start: 20100422
  12. ATIVAN [Concomitant]
     Indication: PRODUCT USED FOR UNKNOWN INDICATION

REACTIONS (11)
  - GASTROENTERITIS VIRAL [None]
  - PANCYTOPENIA [None]
  - PROSTATIC SPECIFIC ANTIGEN INCREASED [None]
  - DIVERTICULUM [None]
  - PETECHIAE [None]
  - PROSTATOMEGALY [None]
  - MENTAL DISORDER [None]
  - DRUG INEFFECTIVE [None]
  - VISION BLURRED [None]
  - DYSPNOEA [None]
  - JOINT SWELLING [None]
